FAERS Safety Report 13188070 (Version 1)
Quarter: 2017Q1

REPORT INFORMATION
  Report Type: Report from Study
  Country: IT (occurrence: IT)
  Receive Date: 20170206
  Receipt Date: 20170206
  Transmission Date: 20170428
  Serious: Yes (Hospitalization)
  Sender: FDA-Public Use
  Company Number: IT-TEVA-736521ACC

PATIENT
  Age: 70 Year
  Sex: Male

DRUGS (3)
  1. IRINOTECAN ACTAVIS - 20 MG / ML CONCENTRATE FOR SOLUTION FOR INFUSION [Suspect]
     Active Substance: IRINOTECAN
     Indication: COLON CANCER
     Route: 065
     Dates: start: 20160107, end: 20170114
  2. FLUOROURACIL TEVA - 5 G / 100 ML SOLUTION FOR INFUSION [Suspect]
     Active Substance: FLUOROURACIL
     Indication: PRODUCT USED FOR UNKNOWN INDICATION
     Dates: start: 20160107, end: 20170114
  3. ZALTRAP [Suspect]
     Active Substance: ZIV-AFLIBERCEPT
     Indication: COLON CANCER
     Route: 042
     Dates: start: 20160107, end: 20170114

REACTIONS (3)
  - Diarrhoea [Recovering/Resolving]
  - Melaena [Recovering/Resolving]
  - Abdominal discomfort [Recovering/Resolving]

NARRATIVE: CASE EVENT DATE: 20170114
